FAERS Safety Report 21092470 (Version 5)
Quarter: 2022Q3

REPORT INFORMATION
  Report Type: Report from Study
  Country: US (occurrence: None)
  Receive Date: 20220718
  Receipt Date: 20220825
  Transmission Date: 20221026
  Serious: Yes (Hospitalization)
  Sender: FDA-Public Use
  Company Number: US-ROCHE-3133700

PATIENT
  Age: 44 Year
  Sex: Female
  Weight: 64.5 kg

DRUGS (28)
  1. PLACEBO [Suspect]
     Active Substance: UNSPECIFIED INGREDIENT
     Indication: Relapsing-remitting multiple sclerosis
     Dosage: INTRAVENOUS (IV) INFUSIONS ON DAYS 1 AND 15 FOR THE FIRST DOSE AND AS A SINGLE INFUSION FOR ALL SUBS
     Route: 042
     Dates: start: 20121005, end: 20121005
  2. PLACEBO [Suspect]
     Active Substance: UNSPECIFIED INGREDIENT
     Dosage: SUBSEQUENT DOSES RECEIVED ON 27/MAR/2013, 06/SEP/2013, 21/FEB/2014.
     Route: 042
     Dates: start: 20121019, end: 20121019
  3. INTERFERON BETA-1A [Suspect]
     Active Substance: INTERFERON BETA-1A
     Indication: Relapsing-remitting multiple sclerosis
     Route: 058
     Dates: start: 20121005, end: 20121005
  4. INTERFERON BETA-1A [Suspect]
     Active Substance: INTERFERON BETA-1A
     Route: 058
     Dates: start: 20140805, end: 20140813
  5. OCRELIZUMAB [Suspect]
     Active Substance: OCRELIZUMAB
     Indication: Relapsing-remitting multiple sclerosis
     Dosage: INTRAVENOUS (IV) INFUSIONS ON DAYS 1 AND 15 FOR THE FIRST DOSE AND AS A SINGLE INFUSION FOR ALL SUBS
     Route: 042
     Dates: start: 20140813, end: 20140813
  6. OCRELIZUMAB [Suspect]
     Active Substance: OCRELIZUMAB
     Dosage: SUBSEQUENT 520 ML DOSES RECEIVED ON 28/JAN/2015 (WEEK 24, LOT NUMBER: 1128191), 556 ML DOSE: 14/JUL/
     Route: 042
     Dates: start: 20140828, end: 20140828
  7. ACETAMINOPHEN [Concomitant]
     Active Substance: ACETAMINOPHEN
     Dosage: SUBSEQUENT DOSES RECEIVED ON 19/OCT/2012, 27/MAR/2013, 06/SEP/2013, 21/FEB/2014, 13/AUG/2014, 28/AUG
     Dates: start: 20121005
  8. DIPHENHYDRAMINE [Concomitant]
     Active Substance: DIPHENHYDRAMINE
     Dosage: SUBSEQUENT DOSES RECEIVED ON 19/OCT/2012, 27/MAR/2013, 06/SEP/2013, 21/FEB/2014, 13/AUG/2014, 28/AUG
     Dates: start: 20121005
  9. METHYLPREDNISOLONE [Concomitant]
     Active Substance: METHYLPREDNISOLONE
     Dosage: SUBSEQUENT DOSES RECEIVED ON 19/OCT/2012, 27/MAR/2013, 06/SEP/2013, 21/FEB/2014, 13/AUG/2014, 28/AUG
     Dates: start: 20121005, end: 20121005
  10. YAZ [Concomitant]
     Active Substance: DROSPIRENONE\ETHINYL ESTRADIOL
     Indication: Contraception
     Dates: start: 2010
  11. ESCITALOPRAM [Concomitant]
     Active Substance: ESCITALOPRAM OXALATE
     Indication: Depression
     Dates: start: 20181101
  12. BUPROPION HYDROCHLORIDE [Concomitant]
     Active Substance: BUPROPION HYDROCHLORIDE
     Indication: Depression
     Dates: start: 20181104
  13. PRILOSEC [Concomitant]
     Active Substance: OMEPRAZOLE MAGNESIUM
     Indication: Dyspepsia
     Dates: start: 20120731, end: 20120806
  14. PRILOSEC [Concomitant]
     Active Substance: OMEPRAZOLE MAGNESIUM
     Dates: start: 20120926
  15. ADVIL [Concomitant]
     Active Substance: IBUPROFEN
     Indication: Pain
     Dates: start: 20121103
  16. ADVIL [Concomitant]
     Active Substance: IBUPROFEN
     Indication: Oropharyngeal pain
     Dates: start: 20120926
  17. LIDOCAINE [Concomitant]
     Active Substance: LIDOCAINE
     Indication: Chest pain
     Dates: start: 20220704, end: 20220705
  18. MELOXICAM [Concomitant]
     Active Substance: MELOXICAM
     Indication: Arthralgia
     Dates: start: 20190828
  19. CHLORHEXIDINE [Concomitant]
     Active Substance: CHLORHEXIDINE
     Dates: start: 20190312
  20. FLONASE [Concomitant]
     Active Substance: FLUTICASONE PROPIONATE
     Dates: start: 20190312
  21. FISH OIL [Concomitant]
     Active Substance: FISH OIL
     Dates: start: 201201
  22. AZITHROMYCIN [Concomitant]
     Active Substance: AZITHROMYCIN
  23. AUGMENTIN [Concomitant]
     Active Substance: AMOXICILLIN\CLAVULANATE POTASSIUM
  24. DOXYCYCLINE [Concomitant]
     Active Substance: DOXYCYCLINE
  25. LEVAQUIN [Concomitant]
     Active Substance: LEVOFLOXACIN
  26. PAXLOVID [Concomitant]
     Active Substance: NIRMATRELVIR\RITONAVIR
     Indication: COVID-19
     Dates: start: 20220525, end: 20220609
  27. PERIDEX [Concomitant]
     Active Substance: CHLORHEXIDINE GLUCONATE
     Dates: start: 20190312
  28. MAGNESIUM [Concomitant]
     Active Substance: MAGNESIUM
     Dates: start: 201201

REACTIONS (1)
  - Pleural effusion [Recovered/Resolved]

NARRATIVE: CASE EVENT DATE: 20220701
